FAERS Safety Report 9098384 (Version 4)
Quarter: 2013Q3

REPORT INFORMATION
  Report Type: Spontaneous
  Country: FR (occurrence: FR)
  Receive Date: 20130213
  Receipt Date: 20130702
  Transmission Date: 20140515
  Serious: Yes (Life-Threatening, Hospitalization)
  Sender: FDA-Public Use
  Company Number: FR-NAPPMUNDI-GBR-2013-0013122

PATIENT
  Age: 53 Year
  Sex: Female

DRUGS (1)
  1. OXYCODONE HYDROCHLORIDE [Suspect]
     Indication: PRODUCT USED FOR UNKNOWN INDICATION
     Dosage: 15 TABLETS OF 5 MG
     Route: 048

REACTIONS (3)
  - Intentional overdose [Unknown]
  - Hypocalcaemia [Unknown]
  - Hypoparathyroidism [Recovering/Resolving]
